FAERS Safety Report 15128780 (Version 3)
Quarter: 2020Q4

REPORT INFORMATION
  Report Type: Spontaneous
  Country: AR (occurrence: AR)
  Receive Date: 20180711
  Receipt Date: 20201120
  Transmission Date: 20210113
  Serious: Yes (Hospitalization, Other)
  Sender: FDA-Public Use
  Company Number: AR-AMGEN-ARGSP2018093518

PATIENT
  Age: 52 Year
  Sex: Female

DRUGS (1)
  1. ENBREL [Suspect]
     Active Substance: ETANERCEPT
     Indication: RHEUMATOID ARTHRITIS
     Dosage: 50 MILLIGRAM, QWK
     Route: 065
     Dates: start: 20180413

REACTIONS (16)
  - Memory impairment [Recovered/Resolved]
  - Dizziness [Unknown]
  - Hypersensitivity [Unknown]
  - Blindness [Not Recovered/Not Resolved]
  - Bradyphrenia [Unknown]
  - Injection site swelling [Not Recovered/Not Resolved]
  - Intraocular pressure increased [Not Recovered/Not Resolved]
  - Cough [Recovered/Resolved]
  - Diabetes mellitus [Not Recovered/Not Resolved]
  - Injection site erythema [Not Recovered/Not Resolved]
  - Pneumonia [Recovered/Resolved]
  - Pain [Not Recovered/Not Resolved]
  - Amnesia [Unknown]
  - Vision blurred [Not Recovered/Not Resolved]
  - Impaired reasoning [Unknown]
  - Injection site reaction [Unknown]

NARRATIVE: CASE EVENT DATE: 20180415
